FAERS Safety Report 4381453-4 (Version None)
Quarter: 2004Q2

REPORT INFORMATION
  Report Type: 
  Country: None (occurrence: None)
  Receive Date: 20040616
  Receipt Date: 20040608
  Transmission Date: 20050107
  Serious: Yes (Other)
  Sender: FDA-Public Use
  Company Number: 2004038395

PATIENT
  Age: 77 Year
  Sex: Male

DRUGS (5)
  1. LIPITOR [Suspect]
     Indication: BLOOD CHOLESTEROL INCREASED
  2. DOXAZOSIN MESYLATE [Suspect]
     Indication: BENIGN PROSTATIC HYPERPLASIA
  3. NAPROXEN [Suspect]
     Indication: PAIN
  4. ACETYLSALICYLIC ACID SRT [Concomitant]
  5. DIAZEPAM [Concomitant]

REACTIONS (20)
  - ARTHRALGIA [None]
  - BACK PAIN [None]
  - BENIGN PROSTATIC HYPERPLASIA [None]
  - BITE [None]
  - BLOOD CHOLESTEROL INCREASED [None]
  - BRUXISM [None]
  - DEAFNESS UNILATERAL [None]
  - GASTROINTESTINAL DISORDER [None]
  - GLAUCOMA [None]
  - HIP ARTHROPLASTY [None]
  - HYPERTENSION [None]
  - INSOMNIA [None]
  - JAW DISORDER [None]
  - MUSCLE SPASMS [None]
  - OEDEMA PERIPHERAL [None]
  - PAIN [None]
  - PAIN IN EXTREMITY [None]
  - RETINAL DETACHMENT [None]
  - URINARY RETENTION [None]
  - VIRAL INFECTION [None]
